FAERS Safety Report 15374920 (Version 1)
Quarter: 2018Q3

REPORT INFORMATION
  Report Type: Other
  Country: GB (occurrence: GB)
  Receive Date: 20180912
  Receipt Date: 20180912
  Transmission Date: 20181010
  Serious: Yes (Hospitalization, Other)
  Sender: FDA-Public Use
  Company Number: GB-GLENMARK PHARMACEUTICALS-2018GMK037306

PATIENT

DRUGS (2)
  1. LAMOTRIGINE. [Suspect]
     Active Substance: LAMOTRIGINE
     Dosage: 225 MG, UNK
     Route: 048
     Dates: start: 20160724, end: 20160814
  2. LAMOTRIGINE. [Suspect]
     Active Substance: LAMOTRIGINE
     Indication: EPILEPSY
     Dosage: 200 MG, UNK
     Route: 048
     Dates: start: 20160715, end: 20170814

REACTIONS (10)
  - Seizure [Unknown]
  - Vomiting [Unknown]
  - Erythema [Recovering/Resolving]
  - Swelling face [Recovered/Resolved]
  - Skin burning sensation [Unknown]
  - Staphylococcal infection [Recovered/Resolved]
  - Somnolence [Unknown]
  - Rash generalised [Unknown]
  - Pain of skin [Unknown]
  - Headache [Unknown]

NARRATIVE: CASE EVENT DATE: 20170526
